FAERS Safety Report 5949994-3 (Version None)
Quarter: 2008Q4

REPORT INFORMATION
  Report Type: 
  Country: None (occurrence: None)
  Receive Date: 20081112
  Receipt Date: 20081106
  Transmission Date: 20090506
  Serious: Yes (Hospitalization, Other)
  Sender: FDA-Public Use
  Company Number: AU-ABBOTT-08P-008-0486260-00

PATIENT
  Sex: Female
  Weight: 95 kg

DRUGS (1)
  1. KLACID [Suspect]
     Indication: URINARY TRACT DISORDER
     Dates: start: 20080312, end: 20080314

REACTIONS (3)
  - CONFUSIONAL STATE [None]
  - DYSARTHRIA [None]
  - DYSPHASIA [None]
